FAERS Safety Report 4982329-1 (Version None)
Quarter: 2006Q2

REPORT INFORMATION
  Report Type: 
  Country: None (occurrence: None)
  Receive Date: 20060425
  Receipt Date: 20060329
  Transmission Date: 20061013
  Serious: Yes (Death, Hospitalization)
  Sender: FDA-Public Use
  Company Number: NZ-ROCHE-442310

PATIENT
  Age: 59 Year
  Sex: Male
  Weight: 65 kg

DRUGS (2)
  1. XELODA [Suspect]
     Route: 048
     Dates: start: 20060215, end: 20060302
  2. OXALIPLATIN [Suspect]
     Route: 042
     Dates: start: 20060215

REACTIONS (1)
  - DIARRHOEA [None]
